FAERS Safety Report 7577632-5 (Version None)
Quarter: 2011Q2

REPORT INFORMATION
  Report Type: 
  Country: None (occurrence: None)
  Receive Date: 20110628
  Receipt Date: 20110617
  Transmission Date: 20111010
  Serious: Yes (Hospitalization, Other)
  Sender: FDA-Public Use
  Company Number: US-BAYER-2011-001580

PATIENT
  Age: 69 Year
  Sex: Male

DRUGS (9)
  1. SORAFENIB (RAF KINASE INHIBITOR) [Suspect]
     Dosage: (CYCLE 5/WEEK 2)
     Route: 048
     Dates: end: 20110325
  2. SORAFENIB (RAF KINASE INHIBITOR) [Suspect]
     Dosage: CYCLE 8
     Dates: end: 20110531
  3. GEMCITABINE [Suspect]
     Indication: BILE DUCT CANCER
     Dosage: UNK
     Dates: start: 20101221, end: 20101228
  4. CISPLATIN [Suspect]
     Indication: BILE DUCT CANCER
     Dosage: UNK
     Dates: start: 20101221, end: 20101228
  5. CISPLATIN [Suspect]
     Dosage: CYCLE 8
     Dates: end: 20110531
  6. CISPLATIN [Suspect]
     Dosage: (CYCLE 5/WEEK 2)
     Dates: end: 20110325
  7. GEMCITABINE [Suspect]
     Dosage: (CYCLE 5/WEEK 2)
     Dates: end: 20110325
  8. SORAFENIB (RAF KINASE INHIBITOR) [Suspect]
     Indication: BILE DUCT CANCER
     Dosage: UNK
     Route: 048
     Dates: start: 20101221, end: 20101228
  9. GEMCITABINE [Suspect]
     Dosage: CYCLE 8
     Dates: end: 20110531

REACTIONS (7)
  - HYPERGLYCAEMIA [None]
  - ABDOMINAL PAIN [None]
  - BLOOD SODIUM DECREASED [None]
  - DRY MOUTH [None]
  - POLLAKIURIA [None]
  - COLITIS [None]
  - GASTROINTESTINAL DISORDER [None]
